FAERS Safety Report 6689706-1 (Version None)
Quarter: 2010Q2

REPORT INFORMATION
  Report Type: 
  Country: None (occurrence: None)
  Receive Date: 20100421
  Receipt Date: 20100409
  Transmission Date: 20101027
  Serious: Yes (Other)
  Sender: FDA-Public Use
  Company Number: NO-BAYER-201016715GPV

PATIENT
  Sex: Female

DRUGS (2)
  1. MIRENA [Suspect]
     Indication: VAGINAL HAEMORRHAGE
     Route: 015
     Dates: start: 20091216
  2. EVOREL [Concomitant]
     Indication: ANXIETY

REACTIONS (7)
  - ADNEXA UTERI CYST [None]
  - CARBOHYDRATE ANTIGEN 125 INCREASED [None]
  - GENITAL HAEMORRHAGE [None]
  - METASTASES TO CENTRAL NERVOUS SYSTEM [None]
  - OVARIAN ATROPHY [None]
  - OVARIAN CYST [None]
  - UTERINE ENLARGEMENT [None]
